FAERS Safety Report 11446556 (Version 4)
Quarter: 2015Q3

REPORT INFORMATION
  Report Type: Spontaneous
  Country: CA (occurrence: CA)
  Receive Date: 20150902
  Receipt Date: 20150924
  Transmission Date: 20151125
  Serious: Yes (Hospitalization, Other)
  Sender: FDA-Public Use
  Company Number: CA-GILEAD-2015-0170130

PATIENT
  Age: 72 Year
  Sex: Male
  Weight: 63.3 kg

DRUGS (6)
  1. INSULIN [Concomitant]
     Active Substance: INSULIN NOS
     Indication: DIABETES MELLITUS
     Dosage: UNK
     Route: 058
     Dates: start: 20150717
  2. HARVONI [Suspect]
     Active Substance: LEDIPASVIR\SOFOSBUVIR
     Indication: HEPATITIS C
     Dosage: 1 DF, UNK
     Route: 048
     Dates: start: 20150702
  3. ENOXAPARIN [Concomitant]
     Active Substance: ENOXAPARIN
     Indication: THROMBOSIS PROPHYLAXIS
     Dosage: 40 MG, UNK
     Route: 058
     Dates: start: 20150717
  4. FUROSEMIDE. [Concomitant]
     Active Substance: FUROSEMIDE
     Indication: ASCITES
     Dosage: 40 MG, UNK
     Route: 048
     Dates: start: 20150717
  5. NADOLOL. [Concomitant]
     Active Substance: NADOLOL
     Indication: VARICOSE VEIN
     Dosage: 40 MG, UNK
     Route: 048
     Dates: start: 20150717
  6. SPIRONOLACTONE. [Concomitant]
     Active Substance: SPIRONOLACTONE
     Indication: ASCITES
     Dosage: 100 MG, UNK
     Route: 048
     Dates: start: 20150718

REACTIONS (4)
  - Ascites [Unknown]
  - Jaundice [Not Recovered/Not Resolved]
  - Hepatic encephalopathy [Recovered/Resolved]
  - Bile duct obstruction [Unknown]

NARRATIVE: CASE EVENT DATE: 20150702
